FAERS Safety Report 9982718 (Version 1)
Quarter: 2014Q1

REPORT INFORMATION
  Report Type: Report from Study
  Country: US (occurrence: US)
  Receive Date: 20140307
  Receipt Date: 20140307
  Transmission Date: 20141002
  Serious: No
  Sender: FDA-Public Use
  Company Number: US-ABBVIE-13P-163-1176983-00

PATIENT
  Age: 28 Year
  Sex: Female

DRUGS (3)
  1. HUMIRA [Suspect]
     Indication: CROHN^S DISEASE
     Dates: start: 20131017
  2. BIRTH CONTROL PILL [Concomitant]
     Indication: CONTRACEPTION
  3. MULTI VITAMIN + MINERAL [Concomitant]
     Indication: VITAMIN SUPPLEMENTATION

REACTIONS (1)
  - Injection site bruising [Recovering/Resolving]
